FAERS Safety Report 6447965-4 (Version None)
Quarter: 2009Q4

REPORT INFORMATION
  Report Type: 
  Country: None (occurrence: None)
  Receive Date: 20091120
  Receipt Date: 20091111
  Transmission Date: 20100525
  Serious: Yes (Other)
  Sender: FDA-Public Use
  Company Number: GB-JNJFOC-20091103641

PATIENT
  Age: 55 Year
  Sex: Male
  Weight: 99 kg

DRUGS (8)
  1. REMICADE [Suspect]
     Indication: RHEUMATOID ARTHRITIS
     Route: 042
     Dates: start: 20020904, end: 20030724
  2. METHOTREXATE [Concomitant]
  3. LEFLUNOMIDE [Concomitant]
  4. AMITRIPTYLINE HCL [Concomitant]
  5. ACETAMINOPHEN WITH PROPOXYPHENE HCL TAB [Concomitant]
  6. ALUMINUM HYDROXIDE W/MAGNESIUM HYDROXIDE [Concomitant]
  7. METFORMIN HCL [Concomitant]
  8. OMEPRAZOLE [Concomitant]

REACTIONS (1)
  - MALIGNANT SOFT TISSUE NEOPLASM [None]
